FAERS Safety Report 25970763 (Version 1)
Quarter: 2025Q4

REPORT INFORMATION
  Report Type: Spontaneous
  Country: CN (occurrence: CN)
  Receive Date: 20251028
  Receipt Date: 20251028
  Transmission Date: 20260117
  Serious: Yes (Other)
  Sender: ROCHE
  Company Number: CN-BoehringerIngelheim-2025-BI-102728

PATIENT
  Age: 63 Year
  Sex: Male
  Weight: 75.0 kg

DRUGS (2)
  1. ALTEPLASE [Suspect]
     Active Substance: ALTEPLASE
     Indication: Cerebral infarction
     Route: 042
     Dates: start: 20251019, end: 20251019
  2. ALTEPLASE [Suspect]
     Active Substance: ALTEPLASE
     Route: 042
     Dates: start: 20251019, end: 20251019

REACTIONS (6)
  - Coma [Unknown]
  - Dyspnoea [Recovering/Resolving]
  - Cyanosis [Unknown]
  - Pupil fixed [Unknown]
  - Heart rate abnormal [Unknown]
  - Oxygen saturation decreased [Recovering/Resolving]

NARRATIVE: CASE EVENT DATE: 20251019
